FAERS Safety Report 5269243-1 (Version None)
Quarter: 2007Q1

REPORT INFORMATION
  Report Type: 
  Country: None (occurrence: None)
  Receive Date: 20070319
  Receipt Date: 20070307
  Transmission Date: 20070707
  Serious: Yes (Disabling)
  Sender: FDA-Public Use
  Company Number: DE-ABBOTT-06P-062-0343594-00

PATIENT
  Sex: Female

DRUGS (5)
  1. ERGENYL CHRONOSPHERE [Suspect]
     Indication: EPILEPSY
     Route: 048
     Dates: start: 20060422, end: 20060509
  2. TOPIRAMATE [Concomitant]
     Indication: DRUG USE FOR UNKNOWN INDICATION
     Route: 048
     Dates: start: 20060806
  3. VALPROATE SODIUM [Concomitant]
     Indication: EPILEPSY
     Route: 048
     Dates: start: 19981005, end: 20060422
  4. VALPROATE SODIUM [Concomitant]
     Route: 048
     Dates: start: 20060422, end: 20060509
  5. VALPROATE SODIUM [Concomitant]
     Route: 048
     Dates: start: 20060509

REACTIONS (3)
  - DRUG INEFFECTIVE [None]
  - EPILEPSY [None]
  - MUSCLE SPASMS [None]
